FAERS Safety Report 8310912-4 (Version None)
Quarter: 2012Q2

REPORT INFORMATION
  Report Type: 
  Country: None (occurrence: None)
  Receive Date: 20120425
  Receipt Date: 20120417
  Transmission Date: 20120825
  Serious: No
  Sender: FDA-Public Use
  Company Number: US-BIOGENIDEC-2012BI000881

PATIENT
  Age: 32 Year
  Sex: Female

DRUGS (1)
  1. TYSABRI [Suspect]
     Indication: MULTIPLE SCLEROSIS
     Route: 042
     Dates: start: 20110713, end: 20120316

REACTIONS (5)
  - PAIN [None]
  - FATIGUE [None]
  - HYPERSENSITIVITY [None]
  - SOMNOLENCE [None]
  - INFUSION RELATED REACTION [None]
